FAERS Safety Report 6413554-0 (Version None)
Quarter: 2009Q4

REPORT INFORMATION
  Report Type: 
  Country: None (occurrence: None)
  Receive Date: 20091022
  Receipt Date: 20091022
  Transmission Date: 20100525
  Serious: Yes (Other)
  Sender: FDA-Public Use
  Company Number: None

PATIENT
  Sex: Female
  Weight: 61.2356 kg

DRUGS (2)
  1. ALPRAZOLAM [Suspect]
     Indication: PANIC ATTACK
     Dosage: TOTAL OF 5 PILLS AS NEEDED PO    DAILY
     Route: 048
  2. AMBIEN [Suspect]
     Indication: INSOMNIA
     Dosage: 1 PILL NIGHTLY PO
     Route: 048

REACTIONS (4)
  - FALL [None]
  - INCORRECT DOSE ADMINISTERED [None]
  - MEDICATION ERROR [None]
  - MUSCULOSKELETAL DISORDER [None]
